FAERS Safety Report 23453265 (Version 4)
Quarter: 2025Q1

REPORT INFORMATION
  Report Type: Spontaneous
  Country: US (occurrence: US)
  Receive Date: 20240129
  Receipt Date: 20250321
  Transmission Date: 20250409
  Serious: Yes (Other)
  Sender: PFIZER
  Company Number: US-PFIZER INC-PV202300200152

PATIENT
  Age: 63 Year
  Sex: Male
  Weight: 106.7 kg

DRUGS (5)
  1. BOSULIF [Suspect]
     Active Substance: BOSUTINIB MONOHYDRATE
     Indication: Chronic myeloid leukaemia
     Dosage: TAKE 3 TABLETS (300 MG) BY MOUTH DAILY
     Route: 048
  2. BOSULIF [Suspect]
     Active Substance: BOSUTINIB MONOHYDRATE
     Dosage: TAKE 200 MG BY MOUTH DAILY
     Route: 048
     Dates: start: 202007
  3. BOSULIF [Suspect]
     Active Substance: BOSUTINIB MONOHYDRATE
     Dosage: TAKE 3 TABLETS (300 MG) BY MOUTH DAILY
     Route: 048
  4. TOZINAMERAN [Concomitant]
     Active Substance: TOZINAMERAN
     Dates: start: 20210820, end: 20210820
  5. TOZINAMERAN [Concomitant]
     Active Substance: TOZINAMERAN
     Dates: start: 20210913, end: 20210913

REACTIONS (3)
  - Cardiomyopathy [Unknown]
  - Cardiac failure congestive [Unknown]
  - Renal failure [Unknown]
